FAERS Safety Report 7316240-8 (Version None)
Quarter: 2011Q1

REPORT INFORMATION
  Report Type: 
  Country: None (occurrence: None)
  Receive Date: 20110225
  Receipt Date: 20110215
  Transmission Date: 20110831
  Serious: Yes (Death, Hospitalization)
  Sender: FDA-Public Use
  Company Number: MX-GENENTECH-267164

PATIENT
  Sex: Female

DRUGS (12)
  1. BLINDED RITUXIMAB [Suspect]
     Dosage: 375 MG/M2, Q3W
     Route: 042
     Dates: start: 20080410
  2. BLINDED DOXORUBICIN [Suspect]
     Dosage: 375 MG/M2, Q3W
     Route: 042
     Dates: start: 20080410
  3. BLINDED PREDNISONE [Suspect]
     Dosage: 375 MG/M2, Q3W
     Route: 042
     Dates: start: 20080410
  4. BLINDED BEVACIZUMAB [Suspect]
     Dosage: 375 MG/M2, Q3W
     Route: 042
     Dates: start: 20080410
  5. CYCLOPHOSPHAMIDE [Suspect]
     Indication: DIFFUSE LARGE B-CELL LYMPHOMA
     Dosage: 750 MG/M2, Q3W
     Route: 042
     Dates: start: 20080410
  6. DOXORUBICIN [Suspect]
     Indication: DIFFUSE LARGE B-CELL LYMPHOMA
     Dosage: 50 MG/M2, Q3W
     Route: 042
     Dates: start: 20080410
  7. BLINDED PLACEBO [Suspect]
     Dosage: 375 MG/M2, Q3W
     Route: 042
     Dates: start: 20080410
  8. RITUXAN [Suspect]
     Indication: DIFFUSE LARGE B-CELL LYMPHOMA
     Dosage: 355 MG/M2, Q3W
     Route: 042
     Dates: start: 20080410
  9. VINCRISTINE [Suspect]
     Indication: DIFFUSE LARGE B-CELL LYMPHOMA
     Dosage: 1.4 MG/M2, Q3W
     Route: 042
     Dates: start: 20080410
  10. CYCLOPHOSPHAMIDE [Suspect]
     Dosage: 375 MG/M2, Q3W
     Route: 042
     Dates: start: 20080410
  11. PREDNISONE [Suspect]
     Indication: DIFFUSE LARGE B-CELL LYMPHOMA
     Dosage: 100 MG, Q3W
     Dates: start: 20080410
  12. VINCRISTINE [Suspect]
     Dosage: 375 MG/M2, Q3W
     Route: 042
     Dates: start: 20080410

REACTIONS (2)
  - SEPTIC SHOCK [None]
  - GASTROENTERITIS [None]
